FAERS Safety Report 24425716 (Version 1)
Quarter: 2024Q4

REPORT INFORMATION
  Report Type: Spontaneous
  Country: US (occurrence: US)
  Receive Date: 20241011
  Receipt Date: 20241011
  Transmission Date: 20250115
  Serious: Yes (Other)
  Sender: AUROBINDO
  Company Number: US-MLMSERVICE-20240923-PI205685-00272-1

PATIENT
  Age: 46 Year
  Sex: Female

DRUGS (1)
  1. PROGESTERONE [Suspect]
     Active Substance: PROGESTERONE
     Indication: Oral contraception
     Dosage: UNK
     Route: 065

REACTIONS (3)
  - Drug hypersensitivity [Recovering/Resolving]
  - Asthma [Recovering/Resolving]
  - Autoimmune dermatitis [Recovering/Resolving]
